FAERS Safety Report 15327649 (Version 3)
Quarter: 2018Q4

REPORT INFORMATION
  Report Type: Spontaneous
  Country: US (occurrence: US)
  Receive Date: 20180828
  Receipt Date: 20181008
  Transmission Date: 20190204
  Serious: No
  Sender: FDA-Public Use
  Company Number: US-009507513-1808USA011636

PATIENT
  Age: 24 Year
  Sex: Female

DRUGS (1)
  1. NEXPLANON [Suspect]
     Active Substance: ETONOGESTREL
     Indication: CONTRACEPTION
     Dosage: 1 ROD, SUBDERMALLY, LEFT ARM
     Route: 059
     Dates: start: 2016, end: 20180802

REACTIONS (2)
  - Device kink [Recovered/Resolved]
  - No adverse event [Unknown]
